FAERS Safety Report 16925654 (Version 1)
Quarter: 2019Q4

REPORT INFORMATION
  Report Type: Spontaneous
  Country: US (occurrence: US)
  Receive Date: 20191016
  Receipt Date: 20191016
  Transmission Date: 20200122
  Serious: Yes (Death, Other)
  Sender: FDA-Public Use
  Company Number: US-SA-2019SA285882

PATIENT
  Sex: Male

DRUGS (1)
  1. GOLD BOND ORIGINAL STRENGTH POWDER [Suspect]
     Active Substance: MENTHOL\ZINC OXIDE
     Dosage: UNK, UNK

REACTIONS (4)
  - Pain [Not Recovered/Not Resolved]
  - Lung neoplasm malignant [Fatal]
  - Occupational exposure to product [Fatal]
  - Anxiety [Not Recovered/Not Resolved]
